FAERS Safety Report 13626584 (Version 1)
Quarter: 2017Q2

REPORT INFORMATION
  Report Type: Spontaneous
  Country: US (occurrence: US)
  Receive Date: 20170607
  Receipt Date: 20170607
  Transmission Date: 20170830
  Serious: Yes (Disabling)
  Sender: FDA-Public Use
  Company Number: None

PATIENT
  Age: 57 Year
  Sex: Female
  Weight: 66.6 kg

DRUGS (4)
  1. VITAMIN D [Concomitant]
     Active Substance: CHOLECALCIFEROL
  2. TURMERIC [Concomitant]
     Active Substance: HERBALS\TURMERIC
  3. IMIQUIMOD. [Suspect]
     Active Substance: IMIQUIMOD
     Indication: PRECANCEROUS SKIN LESION
     Dosage: ?          QUANTITY:1 PACKET;?
     Route: 061
     Dates: start: 20161101, end: 20161130
  4. TEA [Concomitant]
     Active Substance: TEA LEAF

REACTIONS (6)
  - Product quality issue [None]
  - Skin ulcer [None]
  - Impaired work ability [None]
  - Pyrexia [None]
  - Malaise [None]
  - Asthenia [None]

NARRATIVE: CASE EVENT DATE: 20161101
